FAERS Safety Report 9172223 (Version 1)
Quarter: 2013Q1

REPORT INFORMATION
  Report Type: Spontaneous
  Country: DK (occurrence: RS)
  Receive Date: 20130319
  Receipt Date: 20130319
  Transmission Date: 20140127
  Serious: Yes (Hospitalization, Other)
  Sender: FDA-Public Use
  Company Number: RS-FRI-1000043541

PATIENT
  Age: 65 Year
  Sex: Male

DRUGS (3)
  1. ESCITALOPRAM [Suspect]
     Indication: MAJOR DEPRESSION
     Dosage: 5 MG
     Route: 048
     Dates: start: 201112
  2. ESCITALOPRAM [Suspect]
     Dosage: 10 MG
     Route: 048
     Dates: end: 201302
  3. BROMAZEPAM [Concomitant]
     Dosage: 1.5 MG
     Route: 048

REACTIONS (6)
  - Vomiting [Recovering/Resolving]
  - Nausea [Recovering/Resolving]
  - Diarrhoea [Recovering/Resolving]
  - Hepatitis toxic [Recovering/Resolving]
  - Transaminases increased [Recovering/Resolving]
  - Gastritis [Recovering/Resolving]
